FAERS Safety Report 5938340-7 (Version None)
Quarter: 2008Q4

REPORT INFORMATION
  Report Type: 
  Country: None (occurrence: None)
  Receive Date: 20081103
  Receipt Date: 20081023
  Transmission Date: 20090506
  Serious: Yes (Hospitalization)
  Sender: FDA-Public Use
  Company Number: US-JNJFOC-20081006197

PATIENT
  Sex: Male
  Weight: 151.96 kg

DRUGS (9)
  1. DURAGESIC-100 [Suspect]
     Indication: SLE ARTHRITIS
     Route: 062
  2. DURAGESIC-100 [Suspect]
     Indication: SPINAL COLUMN STENOSIS
     Route: 062
  3. FENTANYL TRANSDERMAL SYSTEM [Suspect]
     Indication: SLE ARTHRITIS
     Route: 062
  4. FENTANYL TRANSDERMAL SYSTEM [Suspect]
     Indication: SPINAL COLUMN STENOSIS
     Route: 062
  5. FENTANYL TRANSDERMAL SYSTEM [Suspect]
     Indication: SLE ARTHRITIS
     Route: 062
  6. FENTANYL TRANSDERMAL SYSTEM [Suspect]
     Indication: SPINAL COLUMN STENOSIS
     Route: 062
  7. CHLOROQUINE [Concomitant]
     Indication: SYSTEMIC LUPUS ERYTHEMATOSUS
     Route: 048
  8. INDOMETHACIN [Concomitant]
     Indication: INFLAMMATION
     Route: 048
  9. ZESTRIL [Concomitant]
     Indication: HYPERTENSION
     Route: 048

REACTIONS (6)
  - CHEST PAIN [None]
  - ENDOCARDITIS STAPHYLOCOCCAL [None]
  - HEART RATE INCREASED [None]
  - PALPITATIONS [None]
  - STAPHYLOCOCCAL INFECTION [None]
  - SYSTEMIC LUPUS ERYTHEMATOSUS [None]
